APPROVED DRUG PRODUCT: AMANTADINE HYDROCHLORIDE
Active Ingredient: AMANTADINE HYDROCHLORIDE
Strength: 50MG/5ML
Dosage Form/Route: SYRUP;ORAL
Application: A075819 | Product #001
Applicant: ADAPTIS PHARMA PRIVATE LTD
Approved: Sep 11, 2002 | RLD: No | RS: No | Type: DISCN